FAERS Safety Report 25295175 (Version 1)
Quarter: 2025Q2

REPORT INFORMATION
  Report Type: Spontaneous
  Country: US (occurrence: US)
  Receive Date: 20250511
  Receipt Date: 20250511
  Transmission Date: 20250716
  Serious: No
  Sender: UCB
  Company Number: US-UCBSA-2024019401

PATIENT
  Sex: Female

DRUGS (1)
  1. CIMZIA [Suspect]
     Active Substance: CERTOLIZUMAB PEGOL
     Indication: Rheumatoid arthritis
     Dosage: 400 MILLIGRAM, EV 4 WEEKS
     Route: 058

REACTIONS (5)
  - Rash pruritic [Recovered/Resolved]
  - Fall [Unknown]
  - Stress fracture [Unknown]
  - Pain in extremity [Unknown]
  - Product dose omission issue [Unknown]
